FAERS Safety Report 11264746 (Version 1)
Quarter: 2015Q3

REPORT INFORMATION
  Report Type: Report from Study
  Country: US (occurrence: US)
  Receive Date: 20150713
  Receipt Date: 20150713
  Transmission Date: 20151125
  Serious: Yes (Death, Hospitalization, Other)
  Sender: FDA-Public Use
  Company Number: US-BRISTOL-MYERS SQUIBB COMPANY-17387564

PATIENT
  Age: 53 Year
  Sex: Female

DRUGS (3)
  1. CARBOPLATIN. [Suspect]
     Active Substance: CARBOPLATIN
     Indication: SMALL CELL LUNG CANCER
     Dosage: LAST DOSE ON 13DEC2012, DOSE:373MG
     Route: 042
     Dates: start: 20121010, end: 20121213
  2. ETOPOSIDE. [Suspect]
     Active Substance: ETOPOSIDE
     Indication: SMALL CELL LUNG CANCER
     Dosage: LAST DOSE ON 13DEC2012,127MG
     Route: 042
     Dates: start: 20121010, end: 20121213
  3. IPILIMUMAB [Suspect]
     Active Substance: IPILIMUMAB
     Indication: SMALL CELL LUNG CANCER
     Dosage: 373 MG, QCYCLE
     Route: 042
     Dates: start: 20121121, end: 20130122

REACTIONS (5)
  - Hypovolaemic shock [Fatal]
  - Malignant neoplasm progression [Fatal]
  - Mental status changes [Fatal]
  - Sepsis [Fatal]
  - Monoplegia [Not Recovered/Not Resolved]

NARRATIVE: CASE EVENT DATE: 20130205
